FAERS Safety Report 5413512-9 (Version None)
Quarter: 2007Q3

REPORT INFORMATION
  Report Type: 
  Country: None (occurrence: None)
  Receive Date: 20070814
  Receipt Date: 20070802
  Transmission Date: 20080115
  Serious: Yes (Death, Other)
  Sender: FDA-Public Use
  Company Number: US-AVENTIS-200715596US

PATIENT
  Age: 89 Year
  Sex: Female

DRUGS (2)
  1. LOVENOX [Suspect]
     Indication: PULMONARY EMBOLISM
  2. LOVENOX [Suspect]

REACTIONS (6)
  - BODY TEMPERATURE INCREASED [None]
  - CONTUSION [None]
  - FIBRINOLYSIS INCREASED [None]
  - PAIN [None]
  - SEPSIS [None]
  - SKIN NECROSIS [None]
